FAERS Safety Report 6651680-1 (Version None)
Quarter: 2010Q1

REPORT INFORMATION
  Report Type: 
  Country: None (occurrence: None)
  Receive Date: 20100322
  Receipt Date: 20100310
  Transmission Date: 20100710
  Serious: Yes (Other)
  Sender: FDA-Public Use
  Company Number: 1000012602

PATIENT
  Age: 39 Year
  Sex: Female
  Weight: 52.8 kg

DRUGS (5)
  1. CITALOPRAM HYDROBROMIDE [Suspect]
     Indication: DEPRESSION
     Dosage: 1 DOSAGE FORMS (1 DOSAGE FORMS, 1 IN 1 D),ORAL
     Route: 048
     Dates: start: 20100222, end: 20100225
  2. ATENOLOL [Concomitant]
  3. DOMPERIDONE [Concomitant]
  4. FLUOXETINE HYDROCHLORIDE [Concomitant]
  5. OMEPRAZOLE [Concomitant]

REACTIONS (4)
  - HALLUCINATION, VISUAL [None]
  - NIGHTMARE [None]
  - SLEEP DISORDER [None]
  - THINKING ABNORMAL [None]
